FAERS Safety Report 13633107 (Version 1)
Quarter: 2017Q2

REPORT INFORMATION
  Report Type: Spontaneous
  Country: PR (occurrence: PR)
  Receive Date: 20170531
  Receipt Date: 20170531
  Transmission Date: 20170830
  Serious: No
  Sender: FDA-Public Use
  Company Number: PR-ASTELLAS-1508641

PATIENT
  Sex: Male

DRUGS (19)
  1. ADAPALENE. [Concomitant]
     Active Substance: ADAPALENE
  2. COLLAGEN [Concomitant]
     Active Substance: COLLAGEN
  3. TARCEVA [Suspect]
     Active Substance: ERLOTINIB HYDROCHLORIDE
     Indication: LUNG NEOPLASM MALIGNANT
     Route: 048
     Dates: start: 20140226
  4. DESONIDE. [Concomitant]
     Active Substance: DESONIDE
  5. ESTAZOLAM. [Concomitant]
     Active Substance: ESTAZOLAM
  6. DIFFERIN [Concomitant]
     Active Substance: ADAPALENE
  7. FLAXSEED [Concomitant]
     Active Substance: FLAX SEED
  8. FEXOFENADINE [Concomitant]
     Active Substance: FEXOFENADINE\FEXOFENADINE HYDROCHLORIDE
  9. FOLIC ACID. [Concomitant]
     Active Substance: FOLIC ACID
  10. MINOCYCLINE [Concomitant]
     Active Substance: MINOCYCLINE\MINOCYCLINE HYDROCHLORIDE
  11. SPIRULINA [Concomitant]
     Active Substance: SPIRULINA
  12. KETOCONAZOLE. [Concomitant]
     Active Substance: KETOCONAZOLE
  13. AQUAPHOR HEALING OITMENT [Concomitant]
  14. ENALAPRIL [Concomitant]
     Active Substance: ENALAPRIL
  15. LISINOPRIL. [Concomitant]
     Active Substance: LISINOPRIL
  16. TRIAMCINOLONE [Concomitant]
     Active Substance: TRIAMCINOLONE
  17. FAMOTIDINE. [Concomitant]
     Active Substance: FAMOTIDINE
  18. CHLORPROMAZINE. [Concomitant]
     Active Substance: CHLORPROMAZINE
  19. GASTRINEX [Concomitant]

REACTIONS (1)
  - Rash [Not Recovered/Not Resolved]
